FAERS Safety Report 9214879 (Version 2)
Quarter: 2013Q3

REPORT INFORMATION
  Report Type: Spontaneous
  Country: US (occurrence: US)
  Receive Date: 20130405
  Receipt Date: 20130904
  Transmission Date: 20140515
  Serious: Yes (Disabling)
  Sender: FDA-Public Use
  Company Number: US-GLAXOSMITHKLINE-A1018762A

PATIENT
  Age: 58 Year
  Sex: Female
  Weight: 50 kg

DRUGS (17)
  1. SORIATANE [Suspect]
     Indication: PRODUCT USED FOR UNKNOWN INDICATION
     Dosage: 25MG PER DAY
     Route: 048
     Dates: start: 20121231
  2. PREDNISONE [Suspect]
     Indication: PRODUCT USED FOR UNKNOWN INDICATION
  3. MULTIVITAMINS [Concomitant]
  4. PROLIA [Concomitant]
  5. OXYCODONE HCL ACETAMINOPHEN [Concomitant]
  6. VALACYCLOVIR [Concomitant]
  7. FLUOROURACIL [Concomitant]
  8. CALCIUM CARBONATE [Concomitant]
  9. VITAMIN D3 [Concomitant]
  10. CITALOPRAM HYDROBROMIDE [Concomitant]
  11. DOXAZOSIN MESYLATE [Concomitant]
  12. PLAQUENIL [Concomitant]
  13. EFUDEX [Concomitant]
  14. ESTRADIOL [Concomitant]
  15. FISH OIL [Concomitant]
  16. VITAMIN E [Concomitant]
  17. BENLYSTA [Concomitant]

REACTIONS (1)
  - Shoulder arthroplasty [Recovering/Resolving]
